FAERS Safety Report 5012194-8 (Version None)
Quarter: 2006Q2

REPORT INFORMATION
  Report Type: 
  Country: None (occurrence: None)
  Receive Date: 20060406
  Receipt Date: 20051208
  Transmission Date: 20061013
  Serious: Yes (Hospitalization)
  Sender: FDA-Public Use
  Company Number: 2005RL000192

PATIENT
  Age: 78 Year
  Sex: Female

DRUGS (3)
  1. ANTARA (MICRONIZED) [Suspect]
     Indication: DRUG USE FOR UNKNOWN INDICATION
     Dosage: 130 MG;QD;PO
     Route: 048
     Dates: start: 20050601
  2. VYTORIN [Concomitant]
  3. FOSAMAX [Concomitant]

REACTIONS (4)
  - ANAEMIA [None]
  - HAEMOGLOBIN DECREASED [None]
  - PLATELET COUNT DECREASED [None]
  - WHITE BLOOD CELL COUNT DECREASED [None]
